FAERS Safety Report 4883802-7 (Version None)
Quarter: 2006Q1

REPORT INFORMATION
  Report Type: 
  Country: None (occurrence: None)
  Receive Date: 20060113
  Receipt Date: 20051229
  Transmission Date: 20060701
  Serious: Yes (Other)
  Sender: FDA-Public Use
  Company Number: USA0509108049

PATIENT
  Age: 6 Year
  Sex: Male
  Weight: 21 kg

DRUGS (1)
  1. STRATTERA [Suspect]
     Indication: ATTENTION DEFICIT/HYPERACTIVITY DISORDER
     Dosage: 18 MG ORAL
     Route: 048
     Dates: start: 20040101, end: 20050906

REACTIONS (3)
  - COMPLEX PARTIAL SEIZURES [None]
  - INAPPROPRIATE AFFECT [None]
  - PETIT MAL EPILEPSY [None]
